FAERS Safety Report 22172380 (Version 2)
Quarter: 2023Q2

REPORT INFORMATION
  Report Type: Spontaneous
  Country: NL (occurrence: NL)
  Receive Date: 20230404
  Receipt Date: 20230530
  Transmission Date: 20230722
  Serious: Yes (Other)
  Sender: FDA-Public Use
  Company Number: NL-SA-SAC20230403000871

PATIENT
  Age: 23 Year

DRUGS (1)
  1. DUPILUMAB [Suspect]
     Active Substance: DUPILUMAB
     Dosage: UNK
     Route: 065
     Dates: start: 20211019

REACTIONS (3)
  - Pericarditis [Unknown]
  - Viral infection [Unknown]
  - Pericardial fibrosis [Unknown]

NARRATIVE: CASE EVENT DATE: 20230211
